FAERS Safety Report 5680686-4 (Version None)
Quarter: 2008Q1

REPORT INFORMATION
  Report Type: 
  Country: None (occurrence: None)
  Receive Date: 20080326
  Receipt Date: 20080318
  Transmission Date: 20080703
  Serious: Yes (Other)
  Sender: FDA-Public Use
  Company Number: BR-ASTRAZENECA-2007UW25036

PATIENT
  Age: 73 Year
  Sex: Female
  Weight: 60 kg

DRUGS (6)
  1. ARIMIDEX [Suspect]
     Indication: BREAST CANCER
     Route: 048
     Dates: start: 20060601
  2. PURAN T4 [Concomitant]
     Indication: HYPOTHYROIDISM
     Route: 048
  3. OMEPRAZOLE [Concomitant]
     Indication: GASTRITIS
     Route: 048
  4. CALCIUM [Concomitant]
     Indication: BONE DISORDER
     Route: 048
  5. LIPITOR [Concomitant]
     Indication: HYPERCHOLESTEROLAEMIA
     Dosage: EVERY TWO DAYS
     Route: 048
  6. ACTONEL [Concomitant]
     Indication: OSTEOPENIA

REACTIONS (4)
  - FALL [None]
  - OSTEOPENIA [None]
  - RESORPTION BONE INCREASED [None]
  - RIB FRACTURE [None]
